FAERS Safety Report 7280704-6 (Version None)
Quarter: 2011Q1

REPORT INFORMATION
  Report Type: 
  Country: None (occurrence: None)
  Receive Date: 20110208
  Receipt Date: 20110131
  Transmission Date: 20110831
  Serious: Yes (Hospitalization)
  Sender: FDA-Public Use
  Company Number: B0690784A

PATIENT
  Age: 37 Year
  Sex: Male
  Weight: 67 kg

DRUGS (6)
  1. LAMICTAL [Suspect]
     Indication: EPILEPSY
     Dosage: 25MG PER DAY
     Route: 048
     Dates: start: 20100914, end: 20100919
  2. ALLOPURINOL [Concomitant]
     Dosage: 100MG PER DAY
     Route: 048
     Dates: start: 20100713
  3. EXCEGRAN [Suspect]
     Indication: EPILEPSY
     Route: 048
     Dates: start: 20100903
  4. DEPAKENE [Concomitant]
     Dates: start: 20100819
  5. OLMETEC [Concomitant]
     Dosage: 10MG PER DAY
     Route: 048
     Dates: start: 20100930
  6. WARFARIN [Suspect]
     Indication: THROMBOSIS PROPHYLAXIS
     Route: 048
     Dates: start: 20100903

REACTIONS (9)
  - ERYTHEMA [None]
  - LYMPHADENOPATHY [None]
  - LYMPHADENITIS [None]
  - MASS [None]
  - DRUG ERUPTION [None]
  - PYREXIA [None]
  - PRURITUS [None]
  - INFLAMMATION [None]
  - RASH GENERALISED [None]
